FAERS Safety Report 23820999 (Version 1)
Quarter: 2024Q2

REPORT INFORMATION
  Report Type: Other
  Country: US (occurrence: US)
  Receive Date: 20240506
  Receipt Date: 20240506
  Transmission Date: 20240716
  Serious: No
  Sender: FDA-Public Use
  Company Number: US-INSUD PHARMA-2404US03625

PATIENT

DRUGS (1)
  1. ESTRADIOL [Suspect]
     Active Substance: ESTRADIOL
     Indication: Product used for unknown indication
     Dosage: 1 MG, UNKNOWN
     Route: 061

REACTIONS (8)
  - Breast induration [Unknown]
  - Limb discomfort [Unknown]
  - Myalgia [Unknown]
  - Pain in extremity [Unknown]
  - Breast pain [Unknown]
  - Joint stiffness [Unknown]
  - Swelling [Unknown]
  - Product substitution issue [Unknown]
